FAERS Safety Report 5938050-6 (Version None)
Quarter: 2008Q4

REPORT INFORMATION
  Report Type: 
  Country: None (occurrence: None)
  Receive Date: 20081031
  Receipt Date: 20081022
  Transmission Date: 20090506
  Serious: Yes (Other)
  Sender: FDA-Public Use
  Company Number: PHHY2008BR25832

PATIENT
  Age: 76 Year

DRUGS (1)
  1. EXFORGE [Suspect]
     Indication: HYPERTENSION
     Dosage: 1 DF, QD
     Route: 048
     Dates: end: 20081022

REACTIONS (4)
  - AGITATION [None]
  - DIZZINESS [None]
  - HEART RATE INCREASED [None]
  - URINARY RETENTION [None]
